FAERS Safety Report 4871779-X (Version None)
Quarter: 2006Q1

REPORT INFORMATION
  Report Type: 
  Country: None (occurrence: None)
  Receive Date: 20060104
  Receipt Date: 20051229
  Transmission Date: 20060701
  Serious: Yes (Other)
  Sender: FDA-Public Use
  Company Number: 200515041EU

PATIENT
  Age: 26 Year
  Sex: Male

DRUGS (6)
  1. NICORETTE [Suspect]
     Indication: SMOKING CESSATION THERAPY
     Dosage: 4MG SINGLE DOSE
     Route: 002
     Dates: start: 20051214, end: 20051214
  2. NICODERM [Suspect]
     Indication: SMOKING CESSATION THERAPY
     Route: 062
     Dates: start: 20051201
  3. HUMULIN 70/30 [Concomitant]
     Indication: DIABETES MELLITUS
     Dosage: 36UNIT UNKNOWN
     Route: 058
     Dates: start: 19960101
  4. SALBUTAMOL [Concomitant]
     Indication: ASTHMA
     Route: 065
     Dates: start: 19960101
  5. ISOPHANE INSULIN [Concomitant]
     Indication: DIABETES MELLITUS
     Dosage: 26UNIT UNKNOWN
     Route: 058
     Dates: start: 19960101
  6. HUMAN INSULIN [Concomitant]
     Indication: DIABETES MELLITUS
     Dosage: 12UD UNKNOWN
     Route: 058
     Dates: start: 19960101

REACTIONS (4)
  - CONVULSION [None]
  - HEART RATE INCREASED [None]
  - HYPOGLYCAEMIC COMA [None]
  - TREMOR [None]
